FAERS Safety Report 6307079-0 (Version None)
Quarter: 2009Q3

REPORT INFORMATION
  Report Type: 
  Country: None (occurrence: None)
  Receive Date: 20090812
  Receipt Date: 20090729
  Transmission Date: 20100115
  Serious: Yes (Other)
  Sender: FDA-Public Use
  Company Number: IT-GENENTECH-288419

PATIENT
  Age: 42 Year
  Sex: Male

DRUGS (2)
  1. XOLAIR [Suspect]
     Indication: ASTHMA
     Dosage: 375 MG, UNK
     Dates: start: 20070101
  2. XOLAIR [Suspect]
     Indication: BLOOD IMMUNOGLOBULIN E INCREASED

REACTIONS (1)
  - ALLERGIC GRANULOMATOUS ANGIITIS [None]
